FAERS Safety Report 9292465 (Version 2)
Quarter: 2013Q2

REPORT INFORMATION
  Report Type: Spontaneous
  Country: IT (occurrence: None)
  Receive Date: 20130513
  Receipt Date: 20130513
  Transmission Date: 20140414
  Serious: Yes (Other)
  Sender: FDA-Public Use
  Company Number: AUR-APL-2013-03974

PATIENT
  Age: 59 Year
  Sex: Male
  Weight: 86 kg

DRUGS (4)
  1. METFORMIN [Suspect]
     Indication: TYPE 2 DIABETES MELLITUS
     Dosage: (1.5 DOSAGE FORM, 1D) ORAL
     Route: 048
     Dates: start: 20120301, end: 20121206
  2. COAPROVEL (KARVEA HCT) [Concomitant]
  3. TENORMIN (ATENOLOL) [Concomitant]
  4. NORVASC (AMLODIPINE BESILATE) [Concomitant]

REACTIONS (3)
  - Nausea [None]
  - Abdominal pain upper [None]
  - Quality of life decreased [None]
